FAERS Safety Report 19797307 (Version 1)
Quarter: 2021Q3

REPORT INFORMATION
  Report Type: Spontaneous
  Country: US (occurrence: US)
  Receive Date: 20210907
  Receipt Date: 20210907
  Transmission Date: 20211014
  Serious: No
  Sender: FDA-Public Use
  Company Number: US-ASTRAZENECA-2021A704091

PATIENT
  Age: 758 Month
  Weight: 127 kg

DRUGS (1)
  1. BYETTA [Suspect]
     Active Substance: EXENATIDE
     Indication: TYPE 2 DIABETES MELLITUS
     Dosage: 5 MCG PE TWICE DAILY AN HOUR BEFORE AM AND PM MEALS
     Route: 058

REACTIONS (3)
  - Device malfunction [Not Recovered/Not Resolved]
  - Cataract [Unknown]
  - Device use issue [Unknown]

NARRATIVE: CASE EVENT DATE: 202108
